FAERS Safety Report 7507937-5 (Version None)
Quarter: 2011Q2

REPORT INFORMATION
  Report Type: 
  Country: None (occurrence: None)
  Receive Date: 20110527
  Receipt Date: 20110512
  Transmission Date: 20111010
  Serious: Yes (Hospitalization)
  Sender: FDA-Public Use
  Company Number: JP-JNJFOC-20110506899

PATIENT
  Sex: Female
  Weight: 51 kg

DRUGS (3)
  1. METHOTREXATE [Suspect]
     Indication: PRODUCT USED FOR UNKNOWN INDICATION
     Route: 048
  2. REMICADE [Suspect]
     Indication: RHEUMATOID ARTHRITIS
     Dosage: 1ST DOSE
     Route: 042
     Dates: start: 20080624
  3. REMICADE [Suspect]
     Dosage: 20 TH DOSE
     Route: 042
     Dates: start: 20110315

REACTIONS (1)
  - PULMONARY TUBERCULOSIS [None]
